FAERS Safety Report 5652191-2 (Version None)
Quarter: 2008Q1

REPORT INFORMATION
  Report Type: 
  Country: None (occurrence: None)
  Receive Date: 20080304
  Receipt Date: 20080220
  Transmission Date: 20080703
  Serious: Yes (Other)
  Sender: FDA-Public Use
  Company Number: TNZFR200800024

PATIENT
  Age: 70 Year
  Sex: Female

DRUGS (3)
  1. INNOHEP (TINZAPARIN SODIUM INJECTION) (TINZAPARIN SODIUM) [Suspect]
     Indication: THROMBOSIS PROPHYLAXIS
     Dosage: DAILY, SUBCUTANEOUS
     Route: 058
     Dates: start: 20071125
  2. ACTONEL [Concomitant]
  3. CACIT-D3 (CALCIUM D3/01483701/) [Concomitant]

REACTIONS (2)
  - HAEMATURIA [None]
  - OSTEOPOROSIS [None]
